FAERS Safety Report 8467132 (Version 4)
Quarter: 2013Q1

REPORT INFORMATION
  Report Type: Spontaneous
  Country: BR (occurrence: BR)
  Receive Date: 20120320
  Receipt Date: 20130221
  Transmission Date: 20140127
  Serious: Yes (Congenital Anomaly)
  Sender: FDA-Public Use
  Company Number: BR-SANOFI-AVENTIS-2012SA015995

PATIENT
  Sex: Male

DRUGS (4)
  1. ARAVA [Suspect]
     Indication: RHEUMATOID ARTHRITIS
     Route: 064
     Dates: end: 20120227
  2. OS-CAL D [Suspect]
     Indication: RHEUMATOID ARTHRITIS
     Route: 064
     Dates: end: 201204
  3. PREDNISONE [Concomitant]
     Dosage: TAKEN TO: DATE OF DELIVERY
     Route: 064
  4. INFLIXIMAB [Concomitant]
     Route: 064
     Dates: end: 20120227

REACTIONS (2)
  - Talipes [Unknown]
  - Foetal exposure during pregnancy [Unknown]
